FAERS Safety Report 14911457 (Version 2)
Quarter: 2018Q2

REPORT INFORMATION
  Report Type: Report from Study
  Country: CA (occurrence: CA)
  Receive Date: 20180518
  Receipt Date: 20180522
  Transmission Date: 20180711
  Serious: Yes (Other)
  Sender: FDA-Public Use
  Company Number: CA-ROCHE-2122615

PATIENT
  Age: 63 Year
  Sex: Male

DRUGS (14)
  1. ALDACTONE [Concomitant]
     Active Substance: SPIRONOLACTONE
     Route: 065
  2. SOLU-MEDROL [Concomitant]
     Active Substance: METHYLPREDNISOLONE SODIUM SUCCINATE
     Indication: PREMEDICATION
     Route: 042
     Dates: start: 20180509
  3. METOPROLOL. [Concomitant]
     Active Substance: METOPROLOL
  4. VENTOLIN [Concomitant]
     Active Substance: ALBUTEROL SULFATE
  5. LIPITOR [Concomitant]
     Active Substance: ATORVASTATIN CALCIUM
  6. PENTOXIFYLLINE. [Concomitant]
     Active Substance: PENTOXIFYLLINE
  7. RITUXAN [Suspect]
     Active Substance: RITUXIMAB
     Indication: GLOMERULONEPHRITIS MEMBRANOUS
     Dosage: INFUSION NO. 1
     Route: 042
     Dates: start: 20180509
  8. BENADRYL [Concomitant]
     Active Substance: DIPHENHYDRAMINE HYDROCHLORIDE
     Indication: PREMEDICATION
     Route: 048
     Dates: start: 20180509
  9. TYLENOL [Concomitant]
     Active Substance: ACETAMINOPHEN
     Indication: PREMEDICATION
     Route: 048
     Dates: start: 20180509
  10. SPIRIVA [Concomitant]
     Active Substance: TIOTROPIUM BROMIDE MONOHYDRATE
  11. ADVAIR HFA [Concomitant]
     Active Substance: FLUTICASONE PROPIONATE\SALMETEROL XINAFOATE
  12. IRBESARTAN. [Concomitant]
     Active Substance: IRBESARTAN
     Route: 065
  13. XARELTO [Concomitant]
     Active Substance: RIVAROXABAN
  14. LASIX [Concomitant]
     Active Substance: FUROSEMIDE
     Route: 065

REACTIONS (2)
  - Infusion related reaction [Recovered/Resolved]
  - Chronic obstructive pulmonary disease [Not Recovered/Not Resolved]

NARRATIVE: CASE EVENT DATE: 20180509
